FAERS Safety Report 5057872-X (Version None)
Quarter: 2006Q3

REPORT INFORMATION
  Report Type: 
  Country: None (occurrence: None)
  Receive Date: 20060721
  Receipt Date: 20060321
  Transmission Date: 20061208
  Serious: No
  Sender: FDA-Public Use
  Company Number: US-GLAXOSMITHKLINE-A0598413A

PATIENT
  Age: 74 Year
  Sex: Female

DRUGS (5)
  1. AVANDIA [Suspect]
     Dosage: 4MG IN THE MORNING
     Route: 048
     Dates: start: 20060201
  2. METFORMIN [Concomitant]
     Dosage: 500MG TWICE PER DAY
     Route: 065
  3. ATENOLOL [Concomitant]
  4. PROVICAL [Concomitant]
  5. ASPIRIN [Concomitant]

REACTIONS (2)
  - DRUG INEFFECTIVE [None]
  - PAIN [None]
